APPROVED DRUG PRODUCT: XENON XE 127
Active Ingredient: XENON XE-127
Strength: 10mCi/VIAL
Dosage Form/Route: GAS;INHALATION
Application: N018536 | Product #002
Applicant: MALLINCKRODT MEDICAL INC
Approved: Oct 1, 1982 | RLD: No | RS: No | Type: DISCN